FAERS Safety Report 5397326-4 (Version None)
Quarter: 2007Q3

REPORT INFORMATION
  Report Type: 
  Country: None (occurrence: None)
  Receive Date: 20070723
  Receipt Date: 20070710
  Transmission Date: 20080115
  Serious: Yes (Other)
  Sender: FDA-Public Use
  Company Number: 02100-JPN-07-0188

PATIENT
  Age: 74 Year
  Sex: Female

DRUGS (5)
  1. CILOSTAZOL [Suspect]
     Indication: THROMBOSIS IN DEVICE
     Dosage: 200 MG, ORAL
     Route: 048
  2. ASPIRIN [Concomitant]
  3. TICLOPIDINE HCL [Concomitant]
  4. ISOSORBIDE DINITRATE [Concomitant]
  5. CANDESARTAN CILEXETIL [Concomitant]

REACTIONS (4)
  - CARDIAC MURMUR [None]
  - CHEST PAIN [None]
  - HEART RATE INCREASED [None]
  - VENTRICULAR DYSFUNCTION [None]
